FAERS Safety Report 21519693 (Version 1)
Quarter: 2022Q4

REPORT INFORMATION
  Report Type: Spontaneous
  Country: US (occurrence: None)
  Receive Date: 20221027
  Receipt Date: 20221027
  Transmission Date: 20230112
  Serious: No
  Sender: FDA-Public Use
  Company Number: None

PATIENT
  Age: 53 Year
  Sex: Male

DRUGS (1)
  1. NIRMATRELVIR\RITONAVIR [Suspect]
     Active Substance: NIRMATRELVIR\RITONAVIR
     Dosage: THREE TAB BID PO
     Route: 048
     Dates: start: 20220930, end: 20221003

REACTIONS (1)
  - Hypertension [None]

NARRATIVE: CASE EVENT DATE: 20221003
